FAERS Safety Report 8371928-5 (Version None)
Quarter: 2012Q2

REPORT INFORMATION
  Report Type: 
  Country: None (occurrence: None)
  Receive Date: 20120518
  Receipt Date: 20120509
  Transmission Date: 20120825
  Serious: Yes (Hospitalization, Other)
  Sender: FDA-Public Use
  Company Number: US-ROCHE-769031

PATIENT
  Sex: Female
  Weight: 65.8 kg

DRUGS (1)
  1. BONIVA [Suspect]
     Indication: OSTEOPOROSIS
     Dosage: IV-3MG/ML
     Dates: start: 20060101, end: 20090101

REACTIONS (3)
  - OSTEONECROSIS OF JAW [None]
  - DEPRESSION [None]
  - ANXIETY [None]
